FAERS Safety Report 5447096-6 (Version None)
Quarter: 2007Q3

REPORT INFORMATION
  Report Type: 
  Country: None (occurrence: None)
  Receive Date: 20070809
  Receipt Date: 20070417
  Transmission Date: 20080115
  Serious: No
  Sender: FDA-Public Use
  Company Number: WAES 0704USA04082

PATIENT

DRUGS (1)
  1. ZOLINZA [Suspect]
     Dosage: PO
     Route: 048

REACTIONS (5)
  - DEHYDRATION [None]
  - DIARRHOEA [None]
  - DYSPNOEA [None]
  - FATIGUE [None]
  - PLATELET COUNT DECREASED [None]
